FAERS Safety Report 9358728 (Version 1)
Quarter: 2013Q2

REPORT INFORMATION
  Report Type: Spontaneous
  Country: DE (occurrence: DE)
  Receive Date: 20130620
  Receipt Date: 20130620
  Transmission Date: 20140414
  Serious: Yes (Hospitalization, Other)
  Sender: FDA-Public Use
  Company Number: DE-ELI_LILLY_AND_COMPANY-DE201306003397

PATIENT
  Sex: Female

DRUGS (9)
  1. FORSTEO [Suspect]
     Indication: OSTEOPOROSIS
     Dosage: UNK UNK, QD
     Route: 058
     Dates: start: 20121001
  2. CORTISONE [Concomitant]
     Dosage: UNK
  3. AMIODARON [Concomitant]
  4. MARCUMAR [Concomitant]
  5. TORASEMID [Concomitant]
  6. APROVEL [Concomitant]
     Dosage: UNK
  7. CALCIUM [Concomitant]
  8. DEKRISTOL [Concomitant]
     Dosage: UNK
  9. VITAMIN B [Concomitant]

REACTIONS (2)
  - Pelvic fracture [Not Recovered/Not Resolved]
  - Fall [Not Recovered/Not Resolved]
